FAERS Safety Report 8196479-2 (Version None)
Quarter: 2012Q1

REPORT INFORMATION
  Report Type: 
  Country: None (occurrence: None)
  Receive Date: 20120309
  Receipt Date: 20120307
  Transmission Date: 20120608
  Serious: Yes (Other)
  Sender: FDA-Public Use
  Company Number: US-PFIZER INC-2012061492

PATIENT
  Sex: Male
  Weight: 95.238 kg

DRUGS (5)
  1. CELEBREX [Suspect]
     Indication: INTERVERTEBRAL DISC PROTRUSION
     Dosage: 200 MG, 1X/DAY
     Route: 048
     Dates: end: 20110401
  2. LYRICA [Suspect]
     Indication: FIBROMYALGIA
     Dosage: 100 MG, 3X/DAY
     Route: 048
     Dates: start: 20100101, end: 20110101
  3. TYLENOL [Concomitant]
     Indication: PAIN
     Dosage: UNK
  4. CELEBREX [Suspect]
     Indication: OSTEOARTHRITIS
  5. TRAMADOL [Concomitant]
     Indication: PAIN
     Dosage: 50 MG, UNK

REACTIONS (4)
  - ABDOMINAL PAIN UPPER [None]
  - DIVERTICULITIS [None]
  - MALAISE [None]
  - HYPERSENSITIVITY [None]
